FAERS Safety Report 21949896 (Version 3)
Quarter: 2023Q1

REPORT INFORMATION
  Report Type: Spontaneous
  Country: CN (occurrence: CN)
  Receive Date: 20230203
  Receipt Date: 20230313
  Transmission Date: 20230418
  Serious: Yes (Other)
  Sender: FDA-Public Use
  Company Number: CN-MYLANLABS-2023M1011294

PATIENT
  Age: 23 Year
  Sex: Male

DRUGS (1)
  1. CARDURA XL [Suspect]
     Active Substance: DOXAZOSIN MESYLATE
     Indication: Prostatitis
     Dosage: 4 MILLIGRAM, QD (ONE TABLET EACH NIGHT)
     Route: 065
     Dates: start: 20221110, end: 20221120

REACTIONS (9)
  - Erectile dysfunction [Not Recovered/Not Resolved]
  - Restlessness [Not Recovered/Not Resolved]
  - Reading disorder [Not Recovered/Not Resolved]
  - Dysphoria [Not Recovered/Not Resolved]
  - Irritability [Unknown]
  - Decreased appetite [Unknown]
  - Penis disorder [Unknown]
  - Anxiety [Not Recovered/Not Resolved]
  - Depression [Not Recovered/Not Resolved]
